FAERS Safety Report 23451262 (Version 1)
Quarter: 2024Q1

REPORT INFORMATION
  Report Type: Spontaneous
  Country: US (occurrence: None)
  Receive Date: 20240126
  Receipt Date: 20240126
  Transmission Date: 20240410
  Serious: Yes (Death)
  Sender: FDA-Public Use
  Company Number: None

PATIENT
  Age: 69 Year
  Sex: Male

DRUGS (26)
  1. TACROLIMUS [Suspect]
     Active Substance: TACROLIMUS
     Indication: Heart transplant
     Dosage: FREQUENCY : TWICE A DAY;?
     Route: 048
     Dates: start: 20220507
  2. TACROLIMUS [Suspect]
     Active Substance: TACROLIMUS
     Indication: Immunosuppression
  3. TACROLIMUS [Suspect]
     Active Substance: TACROLIMUS
     Indication: Heart transplant
     Dosage: OTHER FREQUENCY : 1QAM;?
     Route: 048
     Dates: start: 20220507, end: 20240112
  4. TACROLIMUS [Suspect]
     Active Substance: TACROLIMUS
     Indication: Immunosuppression
  5. GABAPENTIN [Concomitant]
  6. CIALIS TABLETS [Concomitant]
  7. NIACINAMIDE [Concomitant]
  8. VYNDAMAX [Concomitant]
  9. TYLENOL [Concomitant]
  10. TPRAVASTATIN [Concomitant]
  11. CALCIUM CITRATE [Concomitant]
     Active Substance: CALCIUM CITRATE
  12. VITAMIN D MAX [Concomitant]
  13. VITAMIN B12 [Concomitant]
     Active Substance: CYANOCOBALAMIN
  14. TORSEMIDE [Concomitant]
  15. TAMSULOSIN [Concomitant]
  16. METHOCARBAMOL [Concomitant]
  17. POTASSIUM HLORIDE [Concomitant]
  18. AMLODIPINE BESYLATE [Concomitant]
  19. ASPIRIN [Concomitant]
  20. SENSOR PEPCID [Concomitant]
  21. PREDNISONE [Concomitant]
  22. LANTUS SOLOSTAR PEN [Concomitant]
  23. COLACE [Concomitant]
  24. NOVOLOG FLEX PEN INJ [Concomitant]
  25. MAX-OX [Concomitant]
  26. MYCOPHENOLATE [Concomitant]

REACTIONS (1)
  - Death [None]

NARRATIVE: CASE EVENT DATE: 20240112
